FAERS Safety Report 9250714 (Version 1)
Quarter: 2013Q1

REPORT INFORMATION
  Report Type: Spontaneous
  Country: US (occurrence: None)
  Receive Date: 20130305
  Receipt Date: 20130305
  Transmission Date: 20140127
  Serious: Yes (Other)
  Sender: FDA-Public Use
  Company Number: 163-21880-12082444

PATIENT
  Age: 75 Year
  Sex: Female
  Weight: 108.9 kg

DRUGS (4)
  1. REVLIMID [Suspect]
     Indication: PLASMA CELL MYELOMA
     Dosage: 21 IN 21 D
     Route: 048
     Dates: start: 20120327
  2. PANTOPRAZOLE [Concomitant]
  3. PREDNISONE [Concomitant]
  4. ALKERAN [Concomitant]

REACTIONS (2)
  - Oedema [None]
  - Haemoglobin decreased [None]
